FAERS Safety Report 13575078 (Version 7)
Quarter: 2017Q4

REPORT INFORMATION
  Report Type: Spontaneous
  Country: GB (occurrence: GB)
  Receive Date: 20170523
  Receipt Date: 20171113
  Transmission Date: 20180320
  Serious: Yes (Hospitalization)
  Sender: FDA-Public Use
  Company Number: GB-MYLANLABS-2017M1030441

PATIENT
  Age: 16 Year
  Sex: Female
  Weight: 66.4 kg

DRUGS (8)
  1. RISPERIDONE. [Suspect]
     Active Substance: RISPERIDONE
     Dosage: UNSPECIFIED, STOPPED IN FEB OR MAR-2017
     Route: 048
     Dates: start: 201609, end: 2017
  2. LYRICA [Suspect]
     Active Substance: PREGABALIN
     Indication: POST-TRAUMATIC STRESS DISORDER
     Dosage: 150 MG, BID
     Route: 048
     Dates: start: 2017
  3. RISPERIDONE. [Suspect]
     Active Substance: RISPERIDONE
     Indication: AFFECTIVE DISORDER
     Dosage: UNSPECIFIED
     Route: 048
     Dates: start: 201608, end: 2017
  4. MELATONIN [Concomitant]
     Active Substance: MELATONIN
     Indication: INSOMNIA
     Dosage: 4 MG, QD
     Route: 048
     Dates: start: 201609, end: 201705
  5. CLONAZEPAM. [Concomitant]
     Active Substance: CLONAZEPAM
     Dosage: UNSPECIFIED
     Dates: start: 20170516
  6. LYRICA [Suspect]
     Active Substance: PREGABALIN
     Dosage: 100 MG, BID
     Route: 048
     Dates: start: 20170410, end: 2017
  7. LYRICA [Suspect]
     Active Substance: PREGABALIN
     Indication: ANXIETY
     Dosage: 200 MG, 2X/DAY
     Route: 048
     Dates: start: 201609, end: 20170410
  8. CLONAZEPAM. [Concomitant]
     Active Substance: CLONAZEPAM
     Indication: AGITATION
     Dosage: UNSPECIFIED, 1 MG DECREASED TO 0.5 MG
     Route: 048
     Dates: start: 20170508, end: 20170516

REACTIONS (6)
  - Product use issue [Unknown]
  - Galactorrhoea [Recovered/Resolved]
  - Joint stiffness [Recovered/Resolved]
  - Hyperprolactinaemia [Recovered/Resolved]
  - Anxiety [Not Recovered/Not Resolved]
  - Condition aggravated [Not Recovered/Not Resolved]

NARRATIVE: CASE EVENT DATE: 201609
